FAERS Safety Report 15896043 (Version 1)
Quarter: 2019Q1

REPORT INFORMATION
  Report Type: Spontaneous
  Country: US (occurrence: US)
  Receive Date: 20190131
  Receipt Date: 20190131
  Transmission Date: 20190417
  Serious: No
  Sender: FDA-Public Use
  Company Number: US-SA-2019SA024300

PATIENT
  Sex: Female

DRUGS (1)
  1. DUPIXENT [Suspect]
     Active Substance: DUPILUMAB
     Indication: HIDRADENITIS
     Dosage: 600 MG, 1X
     Route: 058
     Dates: start: 20190124, end: 20190124

REACTIONS (1)
  - Product use in unapproved indication [Unknown]
